FAERS Safety Report 8236524-9 (Version None)
Quarter: 2012Q1

REPORT INFORMATION
  Report Type: 
  Country: None (occurrence: None)
  Receive Date: 20120327
  Receipt Date: 20120316
  Transmission Date: 20120608
  Serious: Yes (Other)
  Sender: FDA-Public Use
  Company Number: JP-BAYER-2011-087777

PATIENT
  Age: 49 Year
  Sex: Female

DRUGS (3)
  1. YAZ [Suspect]
     Indication: DYSMENORRHOEA
     Dosage: 1 DF, QD
     Route: 048
     Dates: start: 20110511
  2. TOUKISHAKUYAKUSAN [Concomitant]
     Indication: DYSMENORRHOEA
     Dosage: DAILY DOSE 3 G
     Route: 048
     Dates: start: 20091101
  3. LEUPROLIDE ACETATE [Concomitant]
     Dosage: 1.88 MG, QD
     Route: 058
     Dates: start: 20101112, end: 20110422

REACTIONS (1)
  - DEAFNESS [None]
